FAERS Safety Report 20379702 (Version 3)
Quarter: 2022Q2

REPORT INFORMATION
  Report Type: Spontaneous
  Country: CZ (occurrence: CZ)
  Receive Date: 20220126
  Receipt Date: 20220413
  Transmission Date: 20220721
  Serious: Yes (Other)
  Sender: FDA-Public Use
  Company Number: CZ-PFIZER INC-202200083549

PATIENT
  Age: 35 Year
  Sex: Female

DRUGS (3)
  1. MYLOTARG [Suspect]
     Active Substance: GEMTUZUMAB OZOGAMICIN
     Indication: Acute myeloid leukaemia
     Dosage: 5 MG, CYCLIC (7+10+GEMTUZUMAB OZOGAMICIN ON D1, D4 AND D7, TOTAL 15MG)
     Dates: start: 20211006
  2. DAUNORUBICIN [Suspect]
     Active Substance: DAUNORUBICIN
     Indication: Acute myeloid leukaemia
     Dosage: 76 MG, CYCLIC (ON D1-D3, TOTAL 228 MG)
     Dates: start: 20211006
  3. CYTARABINE [Suspect]
     Active Substance: CYTARABINE
     Indication: Acute myeloid leukaemia
     Dosage: 252 MG, CYCLIC (ON D1-D7, TOTAL 1764 MG)
     Dates: start: 20211006

REACTIONS (4)
  - Thrombocytopenia [Unknown]
  - Subarachnoid haemorrhage [Unknown]
  - Stomatitis [Unknown]
  - Vaginal haemorrhage [Recovered/Resolved]

NARRATIVE: CASE EVENT DATE: 20211001
